FAERS Safety Report 7341844-6 (Version None)
Quarter: 2011Q1

REPORT INFORMATION
  Report Type: 
  Country: None (occurrence: None)
  Receive Date: 20110309
  Receipt Date: 20110225
  Transmission Date: 20110831
  Serious: Yes (Death, Hospitalization, Other)
  Sender: FDA-Public Use
  Company Number: CA-ELI_LILLY_AND_COMPANY-CA201102007140

PATIENT
  Sex: Female

DRUGS (37)
  1. ZYPREXA [Suspect]
     Dosage: 10 MG, EACH EVENING
     Route: 048
  2. ZYPREXA [Suspect]
     Dosage: 5 MG, EACH EVENING
     Route: 048
  3. PAXIL [Concomitant]
     Dosage: 20 MG, DAILY (1/D)
  4. EFFEXOR XR [Concomitant]
     Dosage: 75 MG, EACH EVENING
  5. EFFEXOR XR [Concomitant]
     Dosage: 300 MG, EACH EVENING
  6. SEROQUEL [Concomitant]
     Dosage: 25 MG, 2/D
     Route: 048
  7. SEROQUEL [Concomitant]
     Dosage: 150 MG, EACH EVENING
  8. BISACODYL [Concomitant]
     Dosage: 5 MG, AS NEEDED
     Route: 048
  9. COUMADIN [Concomitant]
     Dosage: 1 D/F, UNK
  10. PREDNISONE [Concomitant]
     Dosage: 5 MG, DAILY (1/D)
  11. ZYPREXA ZYDIS [Suspect]
     Dosage: 5 MG, EACH EVENING
     Route: 048
  12. TEMAZEPAM [Concomitant]
     Dosage: 30 MG, AS NEEDED
  13. FRAGMIN [Concomitant]
     Dosage: 1 D/F, UNK
  14. LORAZEPAM [Concomitant]
     Dosage: 0.5 MG, EACH EVENING
     Route: 048
  15. ALTACE [Concomitant]
     Dosage: 10 MG, DAILY (1/D)
     Route: 048
  16. ZOCOR [Concomitant]
     Dosage: 10 MG, EACH EVENING
     Route: 048
  17. ADALAT CC [Concomitant]
     Dosage: 30 MG, DAILY (1/D)
     Route: 048
  18. EPIVAL [Concomitant]
     Dosage: 250 MG, 2/D
     Route: 048
  19. BISACODYL [Concomitant]
     Dosage: 5 MG, AS NEEDED
  20. ZYPREXA [Suspect]
     Dosage: 15 MG, EACH EVENING
     Route: 048
  21. TEMAZEPAM [Concomitant]
     Dosage: 15 MG, AS NEEDED
     Route: 048
  22. DELTAPRIM [Concomitant]
     Dosage: 1 MG, UNK
  23. DIVALPROEX SODIUM [Concomitant]
     Dosage: 250 MG, 2/D
     Route: 048
  24. RISPERDONE [Concomitant]
     Dosage: 0.25 MG, 2/D
  25. NITROGLYCERIN [Concomitant]
     Dosage: 0.6 MG, DAILY (1/D)
  26. MONOCOR [Concomitant]
     Dosage: 1.25 MG, DAILY (1/D)
  27. ZYPREXA ZYDIS [Suspect]
     Dosage: 10 MG, EACH EVENING
     Route: 048
  28. PAXIL [Concomitant]
     Dosage: 20 MG, DAILY (1/D)
     Route: 048
  29. PAXIL [Concomitant]
     Dosage: 60 MG, DAILY (1/D)
  30. EFFEXOR XR [Concomitant]
     Dosage: 37.5 MG, DAILY (1/D)
     Route: 048
  31. SEROQUEL [Concomitant]
     Dosage: 100 MG, EACH EVENING
  32. BOTOX [Concomitant]
     Dosage: 1 D/F, UNK
  33. OXYCET [Concomitant]
     Dosage: 1 D/F, AS NEEDED
  34. SPIRONOLACTONE [Concomitant]
     Dosage: 25 MG, DAILY (1/D)
  35. ASPIRIN [Concomitant]
     Dosage: 81 MG, DAILY (1/D)
  36. CELEXA [Concomitant]
     Dosage: 20 MG, DAILY (1/D)
  37. DURAGESIC-50 [Concomitant]
     Dosage: 1 D/F, UNK

REACTIONS (8)
  - MYOCARDIAL INFARCTION [None]
  - DIABETES MELLITUS [None]
  - HYPERGLYCAEMIA [None]
  - CEREBROVASCULAR ACCIDENT [None]
  - HAEMATURIA [None]
  - DEATH [None]
  - COMA [None]
  - LUNG INFILTRATION [None]
